FAERS Safety Report 13477500 (Version 1)
Quarter: 2017Q2

REPORT INFORMATION
  Report Type: Spontaneous
  Country: US (occurrence: US)
  Receive Date: 20170425
  Receipt Date: 20170425
  Transmission Date: 20170830
  Serious: Yes (Other)
  Sender: FDA-Public Use
  Company Number: None

PATIENT
  Age: 27 Year
  Sex: Male
  Weight: 48 kg

DRUGS (1)
  1. METRONIDAZOLE. [Suspect]
     Active Substance: METRONIDAZOLE
     Indication: GASTRITIS
     Route: 048
     Dates: start: 20160410, end: 20160415

REACTIONS (8)
  - Diarrhoea [None]
  - Abdominal pain upper [None]
  - Glossitis [None]
  - Decreased appetite [None]
  - Vomiting [None]
  - Abdominal pain [None]
  - Nausea [None]
  - Dysgeusia [None]

NARRATIVE: CASE EVENT DATE: 20160410
